FAERS Safety Report 4381494-7 (Version None)
Quarter: 2004Q2

REPORT INFORMATION
  Report Type: 
  Country: None (occurrence: None)
  Receive Date: 20040615
  Receipt Date: 20040601
  Transmission Date: 20050107
  Serious: Yes (Death, Hospitalization)
  Sender: FDA-Public Use
  Company Number: MEDI-0001618

PATIENT
  Age: 6 Month
  Sex: Male

DRUGS (5)
  1. SYNAGIS [Suspect]
     Indication: ANTIVIRAL PROPHYLAXIS
     Dosage: 2.05 MG1 IN 30 D, INTRAMUSCULAR
     Route: 030
     Dates: start: 20031104, end: 20040106
  2. SYNAGIS [Suspect]
     Indication: ANTIVIRAL PROPHYLAXIS
     Dosage: 2.05 MG1 IN 30 D, INTRAMUSCULAR
     Route: 030
     Dates: start: 20040302, end: 20040302
  3. SYNAGIS [Suspect]
     Indication: ANTIVIRAL PROPHYLAXIS
     Dosage: 2.05 MG1 IN 30 D, INTRAMUSCULAR
     Route: 030
     Dates: start: 20031104
  4. SYNAGIS [Suspect]
  5. ROBINAUL (GLYCOPYRONIUM BROMIDE) [Concomitant]

REACTIONS (4)
  - CEREBRAL PALSY [None]
  - PNEUMONIA [None]
  - RESPIRATORY ARREST [None]
  - SEPSIS [None]
